FAERS Safety Report 5414166-8 (Version None)
Quarter: 2007Q3

REPORT INFORMATION
  Report Type: 
  Country: None (occurrence: None)
  Receive Date: 20070814
  Receipt Date: 20070802
  Transmission Date: 20080115
  Serious: Yes (Life-Threatening)
  Sender: FDA-Public Use
  Company Number: CN-PFIZER INC-2007061761

PATIENT
  Age: 30 Year
  Sex: Male

DRUGS (2)
  1. ZOLOFT [Suspect]
     Indication: NEUROSIS
     Route: 048
     Dates: start: 20070701, end: 20070701
  2. ALL OTHER THERAPEUTIC PRODUCTS [Concomitant]

REACTIONS (1)
  - SHOCK [None]
